FAERS Safety Report 15545901 (Version 1)
Quarter: 2018Q4

REPORT INFORMATION
  Report Type: Spontaneous
  Country: US (occurrence: US)
  Receive Date: 20181017
  Receipt Date: 20181017
  Transmission Date: 20190205
  Serious: No
  Sender: FDA-Public Use
  Company Number: None

PATIENT
  Age: 75 Year
  Sex: Male

DRUGS (1)
  1. UBER NUMB [Suspect]
     Active Substance: LIDOCAINE HYDROCHLORIDE
     Dates: start: 20180404

REACTIONS (2)
  - Rash [None]
  - Product dispensing error [None]

NARRATIVE: CASE EVENT DATE: 20180404
